FAERS Safety Report 5230151-3 (Version None)
Quarter: 2007Q1

REPORT INFORMATION
  Report Type: 
  Country: None (occurrence: None)
  Receive Date: 20070206
  Receipt Date: 20060830
  Transmission Date: 20070707
  Serious: No
  Sender: FDA-Public Use
  Company Number: US-GLAXOSMITHKLINE-A0618632A

PATIENT
  Sex: Female

DRUGS (5)
  1. PAXIL CR [Suspect]
     Indication: DEPRESSION
     Dosage: 37.5MG PER DAY
     Route: 048
  2. DITROPAN XL [Suspect]
     Indication: BLADDER DISORDER
     Dosage: 10MG PER DAY
     Route: 048
  3. NEURONTIN [Suspect]
     Indication: BIPOLAR DISORDER
     Dosage: 600MG TWICE PER DAY
     Route: 048
  4. ALBUTEROL [Concomitant]
  5. ALEVE [Concomitant]

REACTIONS (2)
  - DRUG INTERACTION [None]
  - SOMNOLENCE [None]
